FAERS Safety Report 9809034 (Version 3)
Quarter: 2014Q2

REPORT INFORMATION
  Report Type: Spontaneous
  Country: LV (occurrence: LV)
  Receive Date: 20140110
  Receipt Date: 20140501
  Transmission Date: 20141212
  Serious: Yes (Other)
  Sender: FDA-Public Use
  Company Number: LV-GLAXOSMITHKLINE-B0959386A

PATIENT
  Age: 69 Year
  Sex: Male
  Weight: 100 kg

DRUGS (5)
  1. VOTRIENT [Suspect]
     Indication: RENAL CANCER METASTATIC
     Dosage: 800MG PER DAY
     Route: 048
     Dates: start: 20121211
  2. LOPERAMIDE [Concomitant]
     Indication: DIARRHOEA
     Route: 048
     Dates: start: 20130515
  3. TRAMADOL [Concomitant]
     Indication: ABDOMINAL PAIN
     Route: 048
     Dates: start: 20130515
  4. SULPHASALAZINE [Concomitant]
     Indication: DIARRHOEA
     Dosage: 1000MG PER DAY
     Route: 048
     Dates: start: 20130830, end: 20130907
  5. PRESTERAM [Concomitant]
     Indication: HYPERTENSION
     Route: 048
     Dates: start: 20130115

REACTIONS (5)
  - Palmar-plantar erythrodysaesthesia syndrome [Recovering/Resolving]
  - Diarrhoea [Recovering/Resolving]
  - Thrombocytopenia [Recovering/Resolving]
  - Abdominal pain [Recovering/Resolving]
  - Hypertension [Recovering/Resolving]
